FAERS Safety Report 7863620-8 (Version None)
Quarter: 2011Q4

REPORT INFORMATION
  Report Type: 
  Country: None (occurrence: None)
  Receive Date: 20111027
  Receipt Date: 20101207
  Transmission Date: 20120403
  Serious: No
  Sender: FDA-Public Use
  Company Number: US-AMGEN-USASP2010008301

PATIENT
  Age: 52 Year
  Sex: Female

DRUGS (1)
  1. ENBREL [Suspect]
     Indication: RHEUMATOID ARTHRITIS
     Dosage: 50 MG, QWK
     Dates: start: 20100501

REACTIONS (10)
  - GINGIVAL PAIN [None]
  - TOOTH FRACTURE [None]
  - GINGIVAL SWELLING [None]
  - ASTHMA [None]
  - OROPHARYNGEAL BLISTERING [None]
  - ORAL INFECTION [None]
  - MALAISE [None]
  - ORAL PAIN [None]
  - FATIGUE [None]
  - LYMPH NODE PAIN [None]
